FAERS Safety Report 9540732 (Version 1)
Quarter: 2013Q3

REPORT INFORMATION
  Report Type: Spontaneous
  Country: CA (occurrence: CA)
  Receive Date: 20130920
  Receipt Date: 20130920
  Transmission Date: 20140515
  Serious: Yes (Hospitalization)
  Sender: FDA-Public Use
  Company Number: CA-009507513-1309CAN009670

PATIENT
  Age: 27 Year
  Sex: Male

DRUGS (1)
  1. TEMODAL [Suspect]
     Indication: GERM CELL CANCER
     Dosage: 200 MG, QD
     Route: 048
     Dates: start: 201302, end: 201309

REACTIONS (3)
  - Disease progression [Unknown]
  - Off label use [Unknown]
  - Disease progression [Unknown]
